FAERS Safety Report 25241241 (Version 2)
Quarter: 2025Q2

REPORT INFORMATION
  Report Type: Report from Study
  Country: JP (occurrence: JP)
  Receive Date: 20250425
  Receipt Date: 20250429
  Transmission Date: 20250716
  Serious: Yes (Hospitalization)
  Sender: SK LIFE SCIENCE
  Company Number: JP-ONO-2025JP006673

PATIENT

DRUGS (11)
  1. XCOPRI [Suspect]
     Active Substance: CENOBAMATE
     Indication: Epilepsy
     Route: 048
     Dates: start: 20230202
  2. LEVOTHYROXINE SODIUM [Concomitant]
     Active Substance: LEVOTHYROXINE SODIUM
     Indication: Hypothyroidism
     Dosage: 100 UG, EVERYDAY
     Route: 048
     Dates: start: 2000
  3. ESFLURBIPROFEN\HERBALS [Concomitant]
     Active Substance: ESFLURBIPROFEN\HERBALS
     Indication: Meniscus injury
     Dosage: 1 DF, EVERYDAY
     Route: 030
     Dates: start: 20220512
  4. RAMOSETRON HYDROCHLORIDE [Concomitant]
     Active Substance: RAMOSETRON HYDROCHLORIDE
     Indication: Irritable bowel syndrome
     Dosage: 5 UG, EVERYDAY
     Route: 048
     Dates: start: 20231027
  5. BENIDIPINE HYDROCHLORIDE [Concomitant]
     Active Substance: BENIDIPINE HYDROCHLORIDE
     Indication: Prinzmetal angina
     Dosage: 8 MG, EVERYDAY
     Route: 048
     Dates: start: 20240608
  6. MYOCOR [GLYCERYL TRINITRATE] [Concomitant]
     Indication: Prinzmetal angina
     Route: 012
     Dates: start: 20240608
  7. NICORANDIL [Concomitant]
     Active Substance: NICORANDIL
     Indication: Prinzmetal angina
     Dosage: 10 MG, EVERYDAY
     Route: 048
     Dates: start: 20240620
  8. FELBINAC [Concomitant]
     Active Substance: FELBINAC
     Indication: Pain in extremity
  9. DILTIAZEM HYDROCHLORIDE [Concomitant]
     Active Substance: DILTIAZEM HYDROCHLORIDE
     Indication: Prinzmetal angina
     Dosage: 100 MG, EVERYDAY
     Route: 048
     Dates: start: 20241031
  10. LEVETIRACETAM [Concomitant]
     Active Substance: LEVETIRACETAM
     Indication: Epilepsy
     Dosage: 2000 MG, EVERYDAY
     Route: 048
     Dates: start: 20200808
  11. FYCOMPA [Concomitant]
     Active Substance: PERAMPANEL
     Indication: Epilepsy
     Dosage: 8 MG, EVERYDAY
     Route: 048
     Dates: start: 2019

REACTIONS (1)
  - Altered state of consciousness [Recovering/Resolving]

NARRATIVE: CASE EVENT DATE: 20250411
